FAERS Safety Report 9900289 (Version 4)
Quarter: 2014Q2

REPORT INFORMATION
  Report Type: Spontaneous
  Country: US (occurrence: US)
  Receive Date: 20140215
  Receipt Date: 20140506
  Transmission Date: 20141212
  Serious: Yes (Other)
  Sender: FDA-Public Use
  Company Number: US-JNJFOC-20140207534

PATIENT
  Age: 49 Year
  Sex: Female
  Weight: 68.04 kg

DRUGS (35)
  1. EXTRA STRENGTH TYLENOL [Suspect]
     Route: 065
  2. EXTRA STRENGTH TYLENOL [Suspect]
     Indication: HEADACHE
     Route: 065
     Dates: start: 1981, end: 201308
  3. REGULAR STRENGTH TYLENOL [Suspect]
     Route: 065
  4. REGULAR STRENGTH TYLENOL [Suspect]
     Indication: PAIN
     Route: 065
     Dates: start: 1981, end: 201308
  5. TYLENOL 8 HOUR MUSCLE ACHES AND PAIN [Suspect]
     Route: 065
  6. TYLENOL 8 HOUR MUSCLE ACHES AND PAIN [Suspect]
     Indication: MYALGIA
     Route: 065
     Dates: start: 1981, end: 201308
  7. TYLENOL ARTHRITIS PAIN [Suspect]
     Route: 065
  8. TYLENOL ARTHRITIS PAIN [Suspect]
     Indication: ARTHRALGIA
     Route: 065
     Dates: start: 1981, end: 201308
  9. IBUPROFEN [Concomitant]
     Indication: PAIN
     Route: 065
     Dates: start: 20041030
  10. AMOXICILLIN [Concomitant]
     Indication: PRODUCT USED FOR UNKNOWN INDICATION
     Route: 048
     Dates: start: 20060116
  11. AMOXICILLIN [Concomitant]
     Indication: PRODUCT USED FOR UNKNOWN INDICATION
     Route: 048
     Dates: start: 20040223
  12. AMOXICILLIN [Concomitant]
     Indication: PRODUCT USED FOR UNKNOWN INDICATION
     Route: 048
     Dates: start: 20050103
  13. AMOXICILLIN [Concomitant]
     Indication: PRODUCT USED FOR UNKNOWN INDICATION
     Route: 048
     Dates: start: 20120518
  14. ATENOLOL [Concomitant]
     Indication: PRODUCT USED FOR UNKNOWN INDICATION
     Route: 065
     Dates: start: 20040412
  15. NOR-QD [Concomitant]
     Indication: PRODUCT USED FOR UNKNOWN INDICATION
     Route: 065
     Dates: start: 20040225
  16. PROMETHAZINE/CODEINE [Concomitant]
     Indication: PRODUCT USED FOR UNKNOWN INDICATION
     Dosage: 1-2 TEASPOONFULS EVERY 4-6 HOURS AS NEEDED
     Route: 065
     Dates: start: 20040713
  17. HYDROCHLOROTHIAZIDE [Concomitant]
     Indication: HYPERTENSION
     Route: 065
     Dates: start: 20040412
  18. MEGESTROL ACETATE [Concomitant]
     Indication: PRODUCT USED FOR UNKNOWN INDICATION
     Route: 065
     Dates: start: 20040813
  19. PROPOXYPHENE/APAP [Concomitant]
     Indication: PAIN
     Dosage: 1-2TABLET EVERY 4HOURS
     Route: 065
     Dates: start: 20041030
  20. BUPROPION HCL [Concomitant]
     Indication: PRODUCT USED FOR UNKNOWN INDICATION
     Route: 065
     Dates: start: 20070604
  21. CHERATUSSIN AC [Concomitant]
     Indication: PRODUCT USED FOR UNKNOWN INDICATION
     Route: 065
     Dates: start: 20081020
  22. FLUTICASONE PROPIONATE [Concomitant]
     Indication: PRODUCT USED FOR UNKNOWN INDICATION
     Route: 055
     Dates: start: 20090311
  23. KLOR-CON [Concomitant]
     Indication: PRODUCT USED FOR UNKNOWN INDICATION
     Route: 065
     Dates: start: 20090604
  24. POTASSIUM CHLORIDE [Concomitant]
     Indication: PRODUCT USED FOR UNKNOWN INDICATION
     Route: 065
     Dates: start: 20090611
  25. METHYLPREDNISOLONE [Concomitant]
     Indication: PRODUCT USED FOR UNKNOWN INDICATION
     Route: 065
     Dates: start: 20090713
  26. CIPROFLOXACIN HCL [Concomitant]
     Indication: PRODUCT USED FOR UNKNOWN INDICATION
     Route: 065
     Dates: start: 20100412
  27. PROCTOSONE [Concomitant]
     Indication: PRODUCT USED FOR UNKNOWN INDICATION
     Route: 054
     Dates: start: 20100412
  28. FLUOCINONIDE [Concomitant]
     Indication: PRODUCT USED FOR UNKNOWN INDICATION
     Route: 065
     Dates: start: 20110124
  29. PREDNISONE [Concomitant]
     Indication: PRODUCT USED FOR UNKNOWN INDICATION
     Route: 065
     Dates: start: 20110828
  30. LIDOCAINE [Concomitant]
     Indication: DISCOMFORT
     Route: 048
     Dates: start: 20110828
  31. SULFAMETHOXAZOLE / TRIMETHOPRIM [Concomitant]
     Indication: URINARY TRACT INFECTION
     Route: 048
     Dates: start: 20130715
  32. METRONIDAZOLE [Concomitant]
     Indication: PRODUCT USED FOR UNKNOWN INDICATION
     Route: 067
     Dates: start: 20130717
  33. FLUCONAZOLE [Concomitant]
     Indication: PRODUCT USED FOR UNKNOWN INDICATION
     Route: 048
     Dates: start: 20130722
  34. HYDROCOTRISONE [Concomitant]
     Indication: PRODUCT USED FOR UNKNOWN INDICATION
     Dosage: USE WITH CLOTRIMAZOLE 1%
     Route: 061
     Dates: start: 20130724
  35. HYDROCORTISONE-NEOMYCIN-POLYMYXIN B [Concomitant]
     Indication: EAR DISORDER
     Route: 065
     Dates: start: 20051231

REACTIONS (2)
  - Liver injury [Unknown]
  - Renal failure chronic [Unknown]
